FAERS Safety Report 5867090-0 (Version None)
Quarter: 2008Q3

REPORT INFORMATION
  Report Type: 
  Country: None (occurrence: None)
  Receive Date: 20080902
  Receipt Date: 20080827
  Transmission Date: 20090109
  Serious: Yes (Hospitalization)
  Sender: FDA-Public Use
  Company Number: B0535287A

PATIENT
  Age: 34 Year
  Sex: Male

DRUGS (2)
  1. AUGMENTIN '125' [Suspect]
     Indication: ACUTE TONSILLITIS
     Dosage: 3TAB PER DAY
     Route: 048
     Dates: start: 20080717, end: 20080723
  2. CLARINASE REPETABS [Concomitant]

REACTIONS (4)
  - ANGIOEDEMA [None]
  - PRURITUS [None]
  - TOXIC SKIN ERUPTION [None]
  - URTICARIA [None]
